FAERS Safety Report 9259045 (Version 1)
Quarter: 2013Q2

REPORT INFORMATION
  Report Type: Spontaneous
  Country: US (occurrence: US)
  Receive Date: 20130426
  Receipt Date: 20130426
  Transmission Date: 20140414
  Serious: Yes (Hospitalization)
  Sender: FDA-Public Use
  Company Number: US-ASTRAZENECA-2012SE70226

PATIENT
  Age: 61 Year
  Sex: Female
  Weight: 83 kg

DRUGS (20)
  1. NEXIUM [Suspect]
     Route: 048
  2. LISINOPRIL [Suspect]
     Route: 048
  3. MORPHINE [Concomitant]
     Route: 048
  4. THEOPHYLLINE [Concomitant]
     Route: 048
  5. ZOLOFT [Concomitant]
     Route: 048
  6. LYRICA [Concomitant]
     Route: 048
  7. PREVACID [Concomitant]
     Route: 048
  8. IMDUR [Concomitant]
     Route: 048
  9. VITAMIN B 12 [Concomitant]
     Route: 048
  10. CALCIUM VITAMIN D [Concomitant]
     Dosage: 600-200MG UNIT PER TABLET TWO TIMES A DAY
     Route: 048
  11. ASPIRIN [Concomitant]
     Route: 048
  12. SPIRIVA HANDIHALER [Concomitant]
     Route: 055
  13. FERROUS SULFATE [Concomitant]
     Route: 048
  14. COMBIVENT [Concomitant]
     Dosage: 18-103 MCG/ACT 4 PUFFS BY MOUTH 4 TIMES DAILY
     Route: 055
  15. ADVAIR [Concomitant]
     Dosage: 500-50 MCG/DOSE 1 PUFF BY MOUTH EVERY 12 HOURS
     Route: 055
  16. REMERON [Concomitant]
     Route: 048
  17. NORVASC [Concomitant]
     Route: 048
  18. IMURAN [Concomitant]
     Route: 048
  19. DELTASONE [Concomitant]
     Route: 048
  20. MEGA MULTIVITAMIN FOR WOMEN [Concomitant]
     Route: 048

REACTIONS (2)
  - Pneumonia [Unknown]
  - Swelling [Unknown]
